FAERS Safety Report 7729704-X (Version None)
Quarter: 2011Q3

REPORT INFORMATION
  Report Type: 
  Country: None (occurrence: None)
  Receive Date: 20110906
  Receipt Date: 20110824
  Transmission Date: 20111222
  Serious: Yes (Other)
  Sender: FDA-Public Use
  Company Number: JP-NAPPMUNDI-MAG-2011-0001609

PATIENT
  Sex: Male

DRUGS (22)
  1. OXYCODONE HCL [Suspect]
     Indication: CANCER PAIN
     Dosage: 10 MG, TID
     Route: 048
     Dates: start: 20110406, end: 20110415
  2. OXYCODONE HCL [Suspect]
     Dosage: 10 MG, Q6H
     Dates: start: 20110421
  3. OXYCODONE HCL [Suspect]
     Dosage: 30 MG, TID
     Dates: start: 20110422, end: 20110423
  4. OXYCODONE HCL [Suspect]
     Dosage: 10 MG, TID
     Dates: start: 20110428, end: 20110429
  5. OXYCODONE HCL [Suspect]
     Dosage: 80 MG, DAILY
     Dates: start: 20110512, end: 20110515
  6. OXYCODONE HCL [Suspect]
     Dosage: 10 MG, Q6H
     Dates: start: 20110416, end: 20110417
  7. OXYCODONE HCL [Suspect]
     Dosage: 10 MG, Q6H
     Dates: start: 20110419, end: 20110420
  8. OXYCODONE HCL [Suspect]
     Dosage: 10 MG, TID
     Dates: start: 20110425, end: 20110426
  9. OXYCODONE HCL [Suspect]
     Dosage: 10 MG, TID
     Dates: start: 20110430, end: 20110501
  10. OXYCODONE HCL [Suspect]
     Dosage: 10 MG, BID
     Dates: start: 20110502, end: 20110503
  11. CELECOXIB [Concomitant]
     Indication: CANCER PAIN
     Dosage: UNK
     Dates: end: 20110515
  12. OXYCODONE HCL [Suspect]
     Dosage: 120 MG, DAILY
     Dates: start: 20110422, end: 20110511
  13. OXYCODONE HCL [Suspect]
     Dosage: 10 MG, Q5H
     Dates: start: 20110417, end: 20110418
  14. OXYCODONE HCL [Suspect]
     Indication: CANCER PAIN
     Dosage: 40 MG, DAILY
     Route: 048
     Dates: start: 20110418, end: 20110419
  15. OXYCODONE HCL [Suspect]
     Dosage: 10 MG, TID
     Dates: start: 20110420, end: 20110421
  16. OXYCODONE HCL [Suspect]
     Dosage: 10 MG, Q5H
     Dates: start: 20110429, end: 20110430
  17. OXYCODONE HCL [Suspect]
     Dosage: 10 MG, TID
     Dates: start: 20110504
  18. PROCHLORPERAZINE [Concomitant]
     Indication: PROPHYLAXIS
     Dosage: UNK
     Dates: end: 20110515
  19. OXYCODONE HCL [Suspect]
     Dosage: 10 MG, BID
     Dates: start: 20110424, end: 20110425
  20. OXYCODONE HCL [Suspect]
     Dosage: 10 MG, Q6H
     Dates: start: 20110427, end: 20110428
  21. OXYCODONE HCL [Suspect]
     Dosage: 80 MG, DAILY
     Dates: start: 20110420, end: 20110421
  22. OXYCODONE HCL [Suspect]
     Dosage: 10 MG, BID
     Dates: start: 20110418, end: 20110419

REACTIONS (3)
  - CONSTIPATION [None]
  - HYPERKALAEMIA [None]
  - INSOMNIA [None]
